FAERS Safety Report 14345153 (Version 9)
Quarter: 2019Q1

REPORT INFORMATION
  Report Type: Report from Study
  Country: CA (occurrence: CA)
  Receive Date: 20180103
  Receipt Date: 20190308
  Transmission Date: 20190417
  Serious: Yes (Other)
  Sender: FDA-Public Use
  Company Number: CA-ROCHE-2044367

PATIENT
  Age: 57 Year
  Sex: Female
  Weight: 62 kg

DRUGS (11)
  1. BIOTIN [Concomitant]
     Active Substance: BIOTIN
  2. RESTASIS [Concomitant]
     Active Substance: CYCLOSPORINE
  3. ZOPICLONE [Concomitant]
     Active Substance: ZOPICLONE
  4. ACTEMRA [Suspect]
     Active Substance: TOCILIZUMAB
     Dosage: 20MG/ML
     Route: 042
     Dates: start: 20150203
  5. FISH OIL [Concomitant]
     Active Substance: FISH OIL
  6. RHODIOLA [Concomitant]
     Active Substance: HERBALS
  7. ACTEMRA [Suspect]
     Active Substance: TOCILIZUMAB
     Indication: RHEUMATOID ARTHRITIS
     Dosage: 20 MG/ML
     Route: 042
     Dates: start: 20150331
  8. ACTEMRA [Suspect]
     Active Substance: TOCILIZUMAB
     Route: 042
     Dates: start: 20180625
  9. ACTEMRA [Suspect]
     Active Substance: TOCILIZUMAB
     Route: 042
     Dates: start: 20130331
  10. METHOTREXATE. [Concomitant]
     Active Substance: METHOTREXATE
  11. FOLIC ACID. [Concomitant]
     Active Substance: FOLIC ACID

REACTIONS (12)
  - Abdominal pain lower [Not Recovered/Not Resolved]
  - Musculoskeletal discomfort [Unknown]
  - Fatigue [Not Recovered/Not Resolved]
  - Dyspnoea [Not Recovered/Not Resolved]
  - Cystitis [Not Recovered/Not Resolved]
  - Nausea [Unknown]
  - Weight decreased [Unknown]
  - Ureteric obstruction [Not Recovered/Not Resolved]
  - Back pain [Not Recovered/Not Resolved]
  - Rheumatoid arthritis [Unknown]
  - Renal pain [Not Recovered/Not Resolved]
  - Musculoskeletal pain [Not Recovered/Not Resolved]

NARRATIVE: CASE EVENT DATE: 2017
